FAERS Safety Report 16265404 (Version 1)
Quarter: 2019Q2

REPORT INFORMATION
  Report Type: Spontaneous
  Country: US (occurrence: US)
  Receive Date: 20190328
  Receipt Date: 20190328
  Transmission Date: 20190711
  Serious: No
  Sender: FDA-Public Use
  Company Number: None

PATIENT
  Age: 66 Year
  Sex: Female

DRUGS (2)
  1. TACROLIMUS (ACCORD) [Suspect]
     Active Substance: TACROLIMUS
     Route: 048
     Dates: start: 20161103
  2. MYCOPHENOLIC ACID DR [Suspect]
     Active Substance: MYCOPHENOLIC ACID
     Route: 048
     Dates: start: 20171023

REACTIONS (2)
  - Malaise [None]
  - Nasopharyngitis [None]

NARRATIVE: CASE EVENT DATE: 20190311
